FAERS Safety Report 6464194-9 (Version None)
Quarter: 2009Q4

REPORT INFORMATION
  Report Type: 
  Country: None (occurrence: None)
  Receive Date: 20091201
  Receipt Date: 20091118
  Transmission Date: 20100525
  Serious: Yes (Other)
  Sender: FDA-Public Use
  Company Number: PHEH2009US16356

PATIENT
  Sex: Female

DRUGS (3)
  1. RECLAST [Suspect]
     Dosage: UNK, UNK
     Dates: start: 20091101, end: 20091101
  2. METHOTREXATE [Concomitant]
     Dosage: UNK, UNK
     Route: 065
  3. ANTIHYPERTENSIVE DRUGS [Concomitant]
     Dosage: UNK, UNK
     Route: 065

REACTIONS (2)
  - BEDRIDDEN [None]
  - RHEUMATOID ARTHRITIS [None]
